FAERS Safety Report 7312565-0 (Version None)
Quarter: 2011Q1

REPORT INFORMATION
  Report Type: 
  Country: None (occurrence: None)
  Receive Date: 20110224
  Receipt Date: 20101223
  Transmission Date: 20110831
  Serious: No
  Sender: FDA-Public Use
  Company Number: US-BAYER-2011-011958

PATIENT
  Sex: Female

DRUGS (4)
  1. EXCEDRIN P.M. [DIPHENHYDRAMINE CITRATE,PARACETAMOL] [Concomitant]
  2. ALEVE (CAPLET) [Suspect]
     Indication: HEADACHE
     Route: 048
  3. IBUPROFEN [Concomitant]
  4. CLARITIN-D [Concomitant]

REACTIONS (4)
  - PARAESTHESIA [None]
  - PAIN IN EXTREMITY [None]
  - HYPOAESTHESIA [None]
  - URINE ODOUR ABNORMAL [None]
